FAERS Safety Report 9424042 (Version 2)
Quarter: 2013Q3

REPORT INFORMATION
  Report Type: Spontaneous
  Country: IN (occurrence: IN)
  Receive Date: 20130729
  Receipt Date: 20130811
  Transmission Date: 20140515
  Serious: Yes (Death, Hospitalization)
  Sender: FDA-Public Use
  Company Number: IN-MERCK-1307IND014601

PATIENT
  Age: 60 Year
  Sex: 0

DRUGS (2)
  1. JANUMET [Suspect]
     Dosage: 50/500 MG, 2 TAB/DAY
     Route: 048
  2. INSULIN [Suspect]

REACTIONS (4)
  - Death [Fatal]
  - Urinary tract infection [Unknown]
  - Bedridden [Unknown]
  - Brain operation [Unknown]
